FAERS Safety Report 12682174 (Version 4)
Quarter: 2019Q3

REPORT INFORMATION
  Report Type: Spontaneous
  Country: US (occurrence: US)
  Receive Date: 20160824
  Receipt Date: 20190920
  Transmission Date: 20191004
  Serious: No
  Sender: FDA-Public Use
  Company Number: US-ASTRAZENECA-2016SE88766

PATIENT
  Age: 23905 Day
  Sex: Female
  Weight: 65.3 kg

DRUGS (7)
  1. BYETTA [Suspect]
     Active Substance: EXENATIDE
     Indication: TYPE 2 DIABETES MELLITUS
     Dosage: 10MCG, TWICE DAILY BEFORE HER TWO MAIN MEALS
     Route: 058
  2. BYETTA [Suspect]
     Active Substance: EXENATIDE
     Indication: TYPE 2 DIABETES MELLITUS
     Dosage: UNKNOWN DOSE AND FREQUENCY
     Route: 058
     Dates: end: 201709
  3. BYETTA [Suspect]
     Active Substance: EXENATIDE
     Indication: TYPE 2 DIABETES MELLITUS
     Route: 058
     Dates: start: 201902
  4. METFORMIN [Concomitant]
     Active Substance: METFORMIN HYDROCHLORIDE
  5. BYETTA [Suspect]
     Active Substance: EXENATIDE
     Indication: TYPE 2 DIABETES MELLITUS
     Dosage: 2.4 ML AC, TWICE DAILY BEFORE HER TWO MAIN MEALS
     Route: 058
  6. BYETTA [Suspect]
     Active Substance: EXENATIDE
     Indication: TYPE 2 DIABETES MELLITUS
     Dosage: ONCE A DAY DEPENDING ON MEAL SIZE
     Route: 058
  7. LEXOTHYROXINE [Concomitant]

REACTIONS (9)
  - Hunger [Unknown]
  - Intentional product misuse [Unknown]
  - Blood glucose fluctuation [Recovering/Resolving]
  - Blood glucose increased [Unknown]
  - Weight fluctuation [Unknown]
  - Cardiac disorder [Unknown]
  - Decreased appetite [Unknown]
  - Increased appetite [Unknown]
  - Glycosylated haemoglobin increased [Unknown]

NARRATIVE: CASE EVENT DATE: 20170629
